FAERS Safety Report 8816255 (Version 1)
Quarter: 2012Q4

REPORT INFORMATION
  Report Type: Spontaneous
  Country: US (occurrence: None)
  Receive Date: 20120927
  Receipt Date: 20120927
  Transmission Date: 20130627
  Serious: Yes (Disabling)
  Sender: FDA-Public Use
  Company Number: None

PATIENT
  Age: 65 Year
  Sex: Male
  Weight: 83.01 kg

DRUGS (1)
  1. HIBICLENS [Suspect]
     Dates: start: 20120912, end: 20120916

REACTIONS (4)
  - Documented hypersensitivity to administered drug [None]
  - Rash [None]
  - Deafness [None]
  - Condition aggravated [None]
